FAERS Safety Report 16634311 (Version 2)
Quarter: 2019Q3

REPORT INFORMATION
  Report Type: Spontaneous
  Country: US (occurrence: US)
  Receive Date: 20190726
  Receipt Date: 20190930
  Transmission Date: 20191004
  Serious: No
  Sender: FDA-Public Use
  Company Number: US-BIOGEN-2019BI00766134

PATIENT
  Age: 21 Year
  Sex: Female

DRUGS (1)
  1. PLEGRIDY [Suspect]
     Active Substance: PEGINTERFERON BETA-1A
     Indication: MULTIPLE SCLEROSIS
     Route: 058
     Dates: start: 201904

REACTIONS (4)
  - Dyspnoea [Unknown]
  - Anxiety [Unknown]
  - Panic attack [Unknown]
  - Dry mouth [Unknown]

NARRATIVE: CASE EVENT DATE: 20190719
